FAERS Safety Report 13099037 (Version 1)
Quarter: 2017Q1

REPORT INFORMATION
  Report Type: Spontaneous
  Country: US (occurrence: US)
  Receive Date: 20170109
  Receipt Date: 20170109
  Transmission Date: 20170428
  Serious: No
  Sender: FDA-Public Use
  Company Number: US-DRREDDYS-USA/USA/16/0081905

PATIENT
  Age: 63 Year
  Sex: Male
  Weight: 65.32 kg

DRUGS (1)
  1. HABITROL [Suspect]
     Active Substance: NICOTINE
     Indication: SMOKING CESSATION THERAPY
     Route: 061
     Dates: end: 20160730

REACTIONS (3)
  - Decreased appetite [Recovered/Resolved]
  - Incorrect drug administration duration [Unknown]
  - Weight decreased [Unknown]
